FAERS Safety Report 15305761 (Version 1)
Quarter: 2018Q3

REPORT INFORMATION
  Report Type: Spontaneous
  Country: BR (occurrence: BR)
  Receive Date: 20180822
  Receipt Date: 20180822
  Transmission Date: 20181010
  Serious: Yes (Hospitalization, Other)
  Sender: FDA-Public Use
  Company Number: BR-AMGEN-BRASP2018115379

PATIENT
  Age: 20 Year
  Sex: Female
  Weight: 38 kg

DRUGS (14)
  1. GENUXAL [Concomitant]
     Active Substance: CYCLOPHOSPHAMIDE
     Indication: GASTROINTESTINAL CARCINOMA
     Dosage: 1862.4 MG, UNK (SF 250ML ? 50 MINUTES OF INFUSION)
     Route: 042
     Dates: start: 20180215
  2. FAULDOXO [Concomitant]
     Active Substance: DOXORUBICIN HYDROCHLORIDE
     Indication: PERITONEAL SARCOMA
  3. DIPIRONA [Concomitant]
     Active Substance: METAMIZOLE
     Dosage: UNK
  4. NEULASTIM [Suspect]
     Active Substance: PEGFILGRASTIM
     Indication: PRODUCT USED FOR UNKNOWN INDICATION
     Dosage: 6 MG, UNK
     Route: 058
     Dates: start: 20180216
  5. FAULDVINCRI [Concomitant]
     Active Substance: VINCRISTINE SULFATE
     Indication: PERITONEAL SARCOMA
  6. ETOPOSIDE. [Concomitant]
     Active Substance: ETOPOSIDE
     Indication: GASTROINTESTINAL CARCINOMA
     Dosage: UNK
  7. FAULDOXO [Concomitant]
     Active Substance: DOXORUBICIN HYDROCHLORIDE
     Indication: GASTROINTESTINAL CARCINOMA
     Dosage: 116.4 MG, UNK (SF 50ML?15 MINUTES OF INFUSION)
     Route: 042
     Dates: start: 20180215, end: 2018
  8. GENUXAL [Concomitant]
     Active Substance: CYCLOPHOSPHAMIDE
     Indication: PERITONEAL SARCOMA
  9. IFOSFAMIDE. [Concomitant]
     Active Substance: IFOSFAMIDE
     Indication: PERITONEAL SARCOMA
  10. FAULDVINCRI [Concomitant]
     Active Substance: VINCRISTINE SULFATE
     Indication: GASTROINTESTINAL CARCINOMA
     Dosage: 2 MG, UNK (SF 50ML ? 15 MINUTES OF INFUSION)
     Route: 042
     Dates: start: 20180215
  11. PLASIL [Concomitant]
     Active Substance: METOCLOPRAMIDE HYDROCHLORIDE
     Dosage: UNK
  12. IFOSFAMIDE. [Concomitant]
     Active Substance: IFOSFAMIDE
     Indication: GASTROINTESTINAL CARCINOMA
     Dosage: UNK
  13. ETOPOSIDE. [Concomitant]
     Active Substance: ETOPOSIDE
     Indication: PERITONEAL SARCOMA
  14. TRAMAL [Concomitant]
     Active Substance: TRAMADOL
     Dosage: UNK

REACTIONS (3)
  - Productive cough [Recovered/Resolved]
  - Febrile neutropenia [Recovered/Resolved]
  - Oral herpes [Recovered/Resolved]

NARRATIVE: CASE EVENT DATE: 201805
